FAERS Safety Report 22811659 (Version 3)
Quarter: 2024Q3

REPORT INFORMATION
  Report Type: Report from Study
  Country: NL (occurrence: NL)
  Receive Date: 20230810
  Receipt Date: 20240711
  Transmission Date: 20241017
  Serious: Yes (Hospitalization, Other)
  Sender: ABBVIE
  Company Number: NL-ABBVIE-4281704

PATIENT
  Age: 71 Year
  Sex: Male

DRUGS (8)
  1. CARBIDOPA\LEVODOPA [Suspect]
     Active Substance: CARBIDOPA\LEVODOPA
     Indication: Parkinson^s disease
     Dosage: MD: 15.0ML CD: 3.4ML ED: 3.0ML,??REMAINS AT 16 HOURS
     Route: 050
     Dates: start: 20211207
  2. CARBIDOPA\LEVODOPA [Suspect]
     Active Substance: CARBIDOPA\LEVODOPA
     Dosage: MD: 15.0ML CD: 3.4ML/H ED: 3.0ML
     Route: 050
  3. CARBIDOPA\LEVODOPA [Suspect]
     Active Substance: CARBIDOPA\LEVODOPA
     Dosage: DURATION TEXT: REMAINS AT 16 HOURS
     Route: 050
     Dates: end: 20240329
  4. CARBIDOPA\LEVODOPA [Suspect]
     Active Substance: CARBIDOPA\LEVODOPA
     Dosage: MD:15.0 ML, CD: 3.4ML/H, ED:3.0ML
     Route: 050
     Dates: start: 20240329, end: 20240705
  5. CARBIDOPA\LEVODOPA [Suspect]
     Active Substance: CARBIDOPA\LEVODOPA
     Dosage: MD:15.0 ML, CD: 3.4ML/H, ED:3.0ML?REMAINS AT 16 HOURS
     Route: 050
     Dates: start: 20240705
  6. LEVODOPA [Concomitant]
     Active Substance: LEVODOPA
     Indication: Sleep disorder
     Dosage: AT NIGHT
  7. CARBIDOPA\LEVODOPA [Concomitant]
     Active Substance: CARBIDOPA\LEVODOPA
     Indication: Product used for unknown indication
  8. PRAMIPEXOLE [Concomitant]
     Active Substance: PRAMIPEXOLE\PRAMIPEXOLE DIHYDROCHLORIDE
     Indication: Parkinson^s disease
     Dosage: FORM STRENGTH: 1.25 MG

REACTIONS (24)
  - Arthralgia [Recovering/Resolving]
  - Reduced facial expression [Not Recovered/Not Resolved]
  - Muscle spasms [Not Recovered/Not Resolved]
  - Pain [Not Recovered/Not Resolved]
  - Nocturia [Not Recovered/Not Resolved]
  - Fine motor skill dysfunction [Not Recovered/Not Resolved]
  - Dyskinesia [Not Recovered/Not Resolved]
  - Speech disorder [Not Recovered/Not Resolved]
  - Device physical property issue [Recovered/Resolved]
  - Orthostatic intolerance [Not Recovered/Not Resolved]
  - Stoma site reaction [Not Recovered/Not Resolved]
  - Fall [Recovered/Resolved]
  - On and off phenomenon [Not Recovered/Not Resolved]
  - Hallucination [Recovered/Resolved]
  - Device kink [Recovered/Resolved]
  - Back pain [Recovering/Resolving]
  - Device issue [Recovered/Resolved]
  - Delirium [Recovered/Resolved]
  - Device colour issue [Recovered/Resolved]
  - Parkinson^s disease [Not Recovered/Not Resolved]
  - Abnormal dreams [Not Recovered/Not Resolved]
  - Limb asymmetry [Not Recovered/Not Resolved]
  - Hip fracture [Recovered/Resolved]
  - Decreased appetite [Not Recovered/Not Resolved]

NARRATIVE: CASE EVENT DATE: 20230101
